FAERS Safety Report 4525258-X (Version None)
Quarter: 2004Q4

REPORT INFORMATION
  Report Type: 
  Country: None (occurrence: None)
  Receive Date: 20041213
  Receipt Date: 20040924
  Transmission Date: 20050328
  Serious: Yes (Hospitalization, Disabling)
  Sender: FDA-Public Use
  Company Number: US-MERCK-0412USA01111

PATIENT
  Sex: Female

DRUGS (7)
  1. VYTORIN [Suspect]
     Indication: DIABETES MELLITUS
     Route: 048
     Dates: start: 20040830, end: 20040913
  2. VYTORIN [Suspect]
     Indication: LIPIDS INCREASED
     Route: 048
     Dates: start: 20040830, end: 20040913
  3. HUMULIN N [Concomitant]
     Route: 058
  4. HUMULIN R [Concomitant]
     Route: 058
  5. LEVOTHYROXINE SODIUM [Concomitant]
     Route: 048
  6. WELLBUTRIN [Concomitant]
     Route: 048
  7. LANTUS [Concomitant]
     Route: 058

REACTIONS (5)
  - BLOOD CREATINE PHOSPHOKINASE INCREASED [None]
  - CHEST PAIN [None]
  - HEPATIC ENZYME INCREASED [None]
  - LIVER FUNCTION TEST ABNORMAL [None]
  - MYALGIA [None]
